FAERS Safety Report 14514302 (Version 3)
Quarter: 2018Q1

REPORT INFORMATION
  Report Type: Report from Study
  Country: US (occurrence: US)
  Receive Date: 20180209
  Receipt Date: 20180226
  Transmission Date: 20180509
  Serious: Yes (Hospitalization)
  Sender: FDA-Public Use
  Company Number: US-CELGENEUS-USA-20180202861

PATIENT
  Age: 63 Year
  Sex: Male
  Weight: 49.5 kg

DRUGS (5)
  1. OXYCODONE [Concomitant]
     Active Substance: OXYCODONE
     Indication: PRODUCT USED FOR UNKNOWN INDICATION
     Dosage: 5 MILLIGRAM
     Route: 048
  2. ABRAXANE [Suspect]
     Active Substance: PACLITAXEL
     Indication: OFF LABEL USE
  3. DURVALUMAB. [Suspect]
     Active Substance: DURVALUMAB
     Indication: LIP AND/OR ORAL CAVITY CANCER
     Dosage: 750 MILLIGRAM
     Route: 041
     Dates: start: 20180129, end: 20180206
  4. CARBOPLATIN. [Suspect]
     Active Substance: CARBOPLATIN
     Indication: LIP AND/OR ORAL CAVITY CANCER
     Dosage: AUC=2
     Route: 065
  5. ABRAXANE [Suspect]
     Active Substance: PACLITAXEL
     Indication: LIP AND/OR ORAL CAVITY CANCER
     Dosage: 100 MILLIGRAM/SQ. METER
     Route: 042
     Dates: start: 20180129

REACTIONS (3)
  - Weight decreased [Unknown]
  - Dysphagia [Unknown]
  - Hypovolaemia [Unknown]

NARRATIVE: CASE EVENT DATE: 201802
